FAERS Safety Report 5837299-0 (Version None)
Quarter: 2008Q3

REPORT INFORMATION
  Report Type: 
  Country: None (occurrence: None)
  Receive Date: 20080807
  Receipt Date: 20080729
  Transmission Date: 20090109
  Serious: Yes (Other)
  Sender: FDA-Public Use
  Company Number: US-ELI_LILLY_AND_COMPANY-US200806001172

PATIENT
  Sex: Male
  Weight: 149 kg

DRUGS (8)
  1. BYETTA [Suspect]
     Indication: TYPE 2 DIABETES MELLITUS
     Dosage: 10 UG, 2/D
     Route: 058
     Dates: start: 20070101
  2. ACTOS [Concomitant]
     Indication: TYPE 2 DIABETES MELLITUS
     Dosage: UNK, DAILY (1/D)
     Route: 048
  3. METFORMIN HCL [Concomitant]
     Indication: TYPE 2 DIABETES MELLITUS
     Dosage: UNK, 2/D
     Route: 048
  4. ACYCLOVIR [Concomitant]
     Indication: LYMPHOMA
     Dosage: UNK, UNKNOWN
     Dates: start: 20080101
  5. COZAAR [Concomitant]
     Dosage: 50 MG, DAILY (1/D)
     Route: 065
  6. VYTORIN [Concomitant]
     Dosage: UNK, DAILY (1/D)
     Route: 048
  7. OMEGA-3 FATTY ACIDS [Concomitant]
     Dosage: UNK, 2/D
     Route: 065
  8. ENALAPRIL MALEATE [Concomitant]
     Dosage: 20 MG, 2/D
     Route: 048

REACTIONS (1)
  - LYMPHOMA [None]
